FAERS Safety Report 15941120 (Version 1)
Quarter: 2019Q1

REPORT INFORMATION
  Report Type: Spontaneous
  Country: GB (occurrence: GB)
  Receive Date: 20190208
  Receipt Date: 20190208
  Transmission Date: 20190417
  Serious: Yes (Other)
  Sender: FDA-Public Use
  Company Number: GB-LUNDBECK-DKLU2060324

PATIENT
  Sex: Female

DRUGS (1)
  1. VIGABATRIN. [Suspect]
     Active Substance: VIGABATRIN
     Indication: PRODUCT USED FOR UNKNOWN INDICATION
     Dosage: 80 MG/KG; INTRODUCED 12 MONTHS EARLIER
     Route: 065

REACTIONS (4)
  - Cerebral atrophy [Unknown]
  - Epileptic encephalopathy [Unknown]
  - Dystonia [Recovering/Resolving]
  - Nuclear magnetic resonance imaging brain abnormal [Unknown]
